FAERS Safety Report 9933009 (Version 1)
Quarter: 2014Q1

REPORT INFORMATION
  Report Type: Report from Study
  Country: US (occurrence: US)
  Receive Date: 20140228
  Receipt Date: 20140228
  Transmission Date: 20141002
  Serious: No
  Sender: FDA-Public Use
  Company Number: US-ABBVIE-13P-163-1117082-00

PATIENT
  Age: 47 Year
  Sex: Male
  Weight: 99.88 kg

DRUGS (4)
  1. ANDROGEL [Suspect]
     Indication: BLOOD TESTOSTERONE DECREASED
     Dates: end: 201306
  2. PERCOCET [Concomitant]
     Indication: PAIN
  3. CYCLOBENZAPRINE [Concomitant]
     Indication: MUSCLE RELAXANT THERAPY
  4. MOBIC [Concomitant]
     Indication: SWELLING

REACTIONS (1)
  - Fatigue [Not Recovered/Not Resolved]
